FAERS Safety Report 7564992-4 (Version None)
Quarter: 2011Q2

REPORT INFORMATION
  Report Type: 
  Country: None (occurrence: None)
  Receive Date: 20110622
  Receipt Date: 20110502
  Transmission Date: 20111010
  Serious: Yes (Other)
  Sender: FDA-Public Use
  Company Number: US-MYLANLABS-2011S1005803

PATIENT
  Age: 66 Year
  Sex: Female
  Weight: 58.97 kg

DRUGS (5)
  1. DEPAKOTE [Concomitant]
  2. SYNTHROID [Concomitant]
  3. NAMENDA [Concomitant]
  4. HALDOL [Concomitant]
  5. CLOZAPINE [Suspect]
     Route: 048
     Dates: start: 20110211, end: 20110330

REACTIONS (1)
  - GRANULOCYTOPENIA [None]
